FAERS Safety Report 22190970 (Version 5)
Quarter: 2023Q2

REPORT INFORMATION
  Report Type: Report from Study
  Country: CN (occurrence: CN)
  Receive Date: 20230410
  Receipt Date: 20230502
  Transmission Date: 20230721
  Serious: Yes (Death, Hospitalization)
  Sender: FDA-Public Use
  Company Number: CN-GLAXOSMITHKLINE-CN2023GSK048202

PATIENT

DRUGS (2)
  1. NIRAPARIB [Suspect]
     Active Substance: NIRAPARIB
     Indication: Small cell lung cancer
     Dosage: 200 MG, QD
     Route: 048
     Dates: start: 20230309, end: 20230324
  2. CATEQUENTINIB [Suspect]
     Active Substance: CATEQUENTINIB
     Indication: Small cell lung cancer
     Dosage: 12 MG, CYC (QD FOR 2 WEEKS FOLLOWED BY ONE WEEK BREAK)
     Route: 048
     Dates: start: 20230309, end: 20230322

REACTIONS (5)
  - Hypovolaemic shock [Fatal]
  - Platelet count decreased [Recovering/Resolving]
  - Oesophagitis [Not Recovered/Not Resolved]
  - White blood cell count decreased [Not Recovered/Not Resolved]
  - Neutrophil count decreased [Not Recovered/Not Resolved]

NARRATIVE: CASE EVENT DATE: 20230324
